FAERS Safety Report 19321509 (Version 1)
Quarter: 2021Q2

REPORT INFORMATION
  Report Type: Spontaneous
  Country: US (occurrence: US)
  Receive Date: 20210528
  Receipt Date: 20210528
  Transmission Date: 20210717
  Serious: No
  Sender: FDA-Public Use
  Company Number: US-BEH-2021132077

PATIENT
  Age: 20 Year
  Sex: Male

DRUGS (3)
  1. IDELVION [Suspect]
     Active Substance: COAGULATION FACTOR IX RECOMBINANT HUMAN
     Indication: FACTOR IX DEFICIENCY
     Dosage: 3752 INTERNATIONAL UNIT, QW
     Route: 042
     Dates: start: 202103
  2. TYLENOL [Concomitant]
     Active Substance: ACETAMINOPHEN
     Dosage: UNK, PRN
     Route: 065
  3. IDELVION [Suspect]
     Active Substance: COAGULATION FACTOR IX RECOMBINANT HUMAN
     Indication: FACTOR IX DEFICIENCY
     Dosage: 3752 INTERNATIONAL UNIT, QW
     Route: 042
     Dates: start: 202103

REACTIONS (2)
  - Wound haemorrhage [Unknown]
  - Tattoo [Unknown]

NARRATIVE: CASE EVENT DATE: 202104
